FAERS Safety Report 10272000 (Version 5)
Quarter: 2022Q2

REPORT INFORMATION
  Report Type: Spontaneous
  Country: IT (occurrence: IT)
  Receive Date: 20140702
  Receipt Date: 20220512
  Transmission Date: 20220721
  Serious: Yes (Death, Other)
  Sender: FDA-Public Use
  Company Number: PHHY2014IT079687

PATIENT
  Sex: Female

DRUGS (13)
  1. CARBAMAZEPINE [Suspect]
     Active Substance: CARBAMAZEPINE
     Indication: Status epilepticus
     Dosage: 35.5 MG/KG, QD
     Route: 065
  2. KETAMINE [Suspect]
     Active Substance: KETAMINE
     Indication: Status epilepticus
     Dosage: 2 MG/KG (OCCASIONAL BOLUSES) (2 BOLUSES)
     Route: 040
  3. KETAMINE [Suspect]
     Active Substance: KETAMINE
     Dosage: 10 ?G/KG
     Route: 042
  4. KETAMINE [Suspect]
     Active Substance: KETAMINE
     Dosage: UPTO 24 ?G/KG PER MIN (UPTO 24 MCG/KG/MIN)
     Route: 042
  5. KETAMINE [Suspect]
     Active Substance: KETAMINE
     Dosage: 24 MG/KG (3.6 MG/KG, UNK (INFUSION, PER HOUR)
     Route: 041
  6. KETAMINE [Suspect]
     Active Substance: KETAMINE
     Dosage: 1.44 MG/KG (1.44 MG/KG, UNK (INFUSION, PER HOUR)
     Route: 041
  7. KETAMINE [Suspect]
     Active Substance: KETAMINE
     Dosage: 60 ?G/KG PER MIN (60MCG/KG/MIN)
     Route: 065
  8. PHENOBARBITAL [Suspect]
     Active Substance: PHENOBARBITAL
     Indication: Status epilepticus
     Dosage: UNK
     Route: 065
  9. PHENYTOIN [Suspect]
     Active Substance: PHENYTOIN
     Indication: Status epilepticus
     Dosage: UNK
     Route: 065
  10. MIDAZOLAM [Suspect]
     Active Substance: MIDAZOLAM
     Indication: Status epilepticus
     Dosage: 5 ?G/KG PER MIN (5 MCG/KG/MIN)
     Route: 065
  11. MIDAZOLAM [Suspect]
     Active Substance: MIDAZOLAM
     Dosage: UP TO 20 ?G/KG PER MIN (UP TO 20 MCG/KG/MIN)
     Route: 065
  12. LEVETIRACETAM [Suspect]
     Active Substance: LEVETIRACETAM
     Indication: Status epilepticus
     Dosage: UPTO 50 MG/KG, QD
     Route: 065
  13. PROPOFOL [Suspect]
     Active Substance: PROPOFOL
     Indication: Status epilepticus
     Dosage: 2 MG/KG, UNKNOWN
     Route: 065

REACTIONS (5)
  - Death [Fatal]
  - Drug ineffective [Fatal]
  - Status epilepticus [Fatal]
  - General physical health deterioration [Unknown]
  - Drug level increased [Unknown]
